FAERS Safety Report 24805896 (Version 4)
Quarter: 2025Q2

REPORT INFORMATION
  Report Type: Spontaneous
  Country: US (occurrence: US)
  Receive Date: 20250103
  Receipt Date: 20250530
  Transmission Date: 20250717
  Serious: Yes (Other)
  Sender: PFIZER
  Company Number: US-PFIZER INC-202400334801

PATIENT
  Age: 73 Year
  Sex: Female

DRUGS (1)
  1. XELJANZ XR [Suspect]
     Active Substance: TOFACITINIB CITRATE

REACTIONS (7)
  - Foot operation [Unknown]
  - Knee arthroplasty [Unknown]
  - Oropharyngeal discomfort [Recovering/Resolving]
  - Alopecia [Unknown]
  - Condition aggravated [Unknown]
  - Sinusitis [Not Recovered/Not Resolved]
  - Hypotension [Unknown]
